FAERS Safety Report 8992089 (Version 1)
Quarter: 2012Q4

REPORT INFORMATION
  Report Type: 
  Country: CN (occurrence: CN)
  Receive Date: 20121231
  Receipt Date: 20121231
  Transmission Date: 20130627
  Serious: Yes (Other)
  Sender: FDA-Public Use
  Company Number: PHHY2012CN120521

PATIENT
  Age: 55 Year
  Sex: Male
  Weight: 60 kg

DRUGS (1)
  1. TEGRETOL [Suspect]
     Indication: INTERCOSTAL NEURALGIA
     Dosage: 1 DF, QD
     Route: 048
     Dates: start: 20090822, end: 20090822

REACTIONS (2)
  - Apraxia [Recovered/Resolved]
  - Mental disorder [Recovered/Resolved]
